FAERS Safety Report 26219194 (Version 1)
Quarter: 2025Q4

REPORT INFORMATION
  Report Type: Spontaneous
  Country: US (occurrence: US)
  Receive Date: 20251231
  Receipt Date: 20251231
  Transmission Date: 20260117
  Serious: No
  Sender: BRISTOL-MYERS SQUIBB COMPANY
  Company Number: US-BRISTOL-MYERS SQUIBB COMPANY-2025-174429

PATIENT
  Age: 42 Year
  Sex: Female

DRUGS (5)
  1. COBENFY [Suspect]
     Active Substance: TROSPIUM CHLORIDE\XANOMELINE
     Indication: Schizophrenia
     Dosage: 50MG/20MG
     Route: 048
     Dates: start: 20251111, end: 20251112
  2. COBENFY [Suspect]
     Active Substance: TROSPIUM CHLORIDE\XANOMELINE
     Dosage: 100/20 MG
     Route: 048
     Dates: start: 20251113, end: 20251119
  3. COBENFY [Suspect]
     Active Substance: TROSPIUM CHLORIDE\XANOMELINE
     Dosage: 125MG/30MG
     Route: 048
     Dates: start: 20251120, end: 20251214
  4. COBENFY [Suspect]
     Active Substance: TROSPIUM CHLORIDE\XANOMELINE
     Dosage: 50MG/20MG
     Route: 048
     Dates: start: 20251223, end: 20251229
  5. COBENFY [Suspect]
     Active Substance: TROSPIUM CHLORIDE\XANOMELINE
     Dosage: 100/20 MG
     Route: 048
     Dates: start: 20251215, end: 20251222

REACTIONS (2)
  - Vomiting [Unknown]
  - Nausea [Unknown]
